FAERS Safety Report 7207675-2 (Version None)
Quarter: 2011Q1

REPORT INFORMATION
  Report Type: 
  Country: None (occurrence: None)
  Receive Date: 20110103
  Receipt Date: 20101222
  Transmission Date: 20110831
  Serious: Yes (Hospitalization)
  Sender: FDA-Public Use
  Company Number: FR-GENENTECH-311677

PATIENT
  Sex: Female

DRUGS (2)
  1. MABTHERA [Suspect]
     Indication: RHEUMATOID ARTHRITIS
     Dosage: UNK
     Route: 065
     Dates: start: 20101222
  2. PHENERGAN [Concomitant]
     Indication: PREMEDICATION
     Dosage: UNK
     Dates: start: 20101222

REACTIONS (4)
  - HYPERTENSION [None]
  - SOMNOLENCE [None]
  - MYOCLONUS [None]
  - DYSARTHRIA [None]
